FAERS Safety Report 8168059-6 (Version None)
Quarter: 2012Q1

REPORT INFORMATION
  Report Type: 
  Country: None (occurrence: None)
  Receive Date: 20120227
  Receipt Date: 20120214
  Transmission Date: 20120608
  Serious: Yes (Other)
  Sender: FDA-Public Use
  Company Number: PHHY2011AU100769

PATIENT
  Sex: Female
  Weight: 51.5 kg

DRUGS (2)
  1. RITALIN [Suspect]
     Indication: ATTENTION DEFICIT/HYPERACTIVITY DISORDER
     Dosage: 30 MG, QD
  2. RITALIN [Suspect]
     Dosage: 20 MG, UNK

REACTIONS (2)
  - HYPERPROLACTINAEMIA [None]
  - AMENORRHOEA [None]
